FAERS Safety Report 13577872 (Version 1)
Quarter: 2017Q2

REPORT INFORMATION
  Report Type: Spontaneous
  Country: IL (occurrence: IL)
  Receive Date: 20170524
  Receipt Date: 20170524
  Transmission Date: 20170830
  Serious: Yes (Other)
  Sender: FDA-Public Use
  Company Number: IL-SA-2017SA087867

PATIENT
  Age: 34 Year
  Sex: Female
  Weight: 48 kg

DRUGS (1)
  1. LEMTRADA [Suspect]
     Active Substance: ALEMTUZUMAB
     Indication: MULTIPLE SCLEROSIS
     Route: 041
     Dates: start: 20170510, end: 20170512

REACTIONS (30)
  - Mitral valve incompetence [Unknown]
  - Blood bicarbonate increased [Unknown]
  - Blood lactic acid increased [Unknown]
  - Lymphocyte percentage decreased [Not Recovered/Not Resolved]
  - Monocyte percentage decreased [Not Recovered/Not Resolved]
  - Rash [Recovering/Resolving]
  - Aspartate aminotransferase increased [Recovering/Resolving]
  - Gamma-glutamyltransferase increased [Recovering/Resolving]
  - Alanine aminotransferase increased [Recovering/Resolving]
  - White blood cell count increased [Recovered/Resolved]
  - Red blood cell count decreased [Recovered/Resolved]
  - Protein total decreased [Not Recovered/Not Resolved]
  - Base excess increased [Unknown]
  - Fatigue [Recovering/Resolving]
  - Neutrophil count increased [Not Recovered/Not Resolved]
  - Lymphocyte count decreased [Not Recovered/Not Resolved]
  - Pericardial effusion [Unknown]
  - Heart rate decreased [Recovering/Resolving]
  - Granulocyte percentage [Unknown]
  - Asthenia [Recovering/Resolving]
  - Abdominal pain [Recovering/Resolving]
  - Hepatic enzyme increased [Recovering/Resolving]
  - Blood calcium decreased [Not Recovered/Not Resolved]
  - Blood lactate dehydrogenase increased [Unknown]
  - Procalcitonin decreased [Not Recovered/Not Resolved]
  - Granulocyte count increased [Unknown]
  - Chest discomfort [Recovering/Resolving]
  - Blood glucose decreased [Unknown]
  - Monocyte count decreased [Unknown]
  - Neutrophil percentage increased [Not Recovered/Not Resolved]

NARRATIVE: CASE EVENT DATE: 20170513
